FAERS Safety Report 20108013 (Version 3)
Quarter: 2021Q4

REPORT INFORMATION
  Report Type: Spontaneous
  Country: CN (occurrence: None)
  Receive Date: 20211124
  Receipt Date: 20211202
  Transmission Date: 20220303
  Serious: Yes (Death, Other)
  Sender: FDA-Public Use
  Company Number: 2021A819082

PATIENT
  Age: 71 Year
  Sex: Male
  Weight: 74 kg

DRUGS (1)
  1. IMFINZI [Suspect]
     Active Substance: DURVALUMAB
     Indication: Non-small cell lung cancer stage III
     Dosage: 740MG / CYCLE
     Route: 042
     Dates: start: 20191111, end: 20200401

REACTIONS (3)
  - Metastases to central nervous system [Fatal]
  - Immune-mediated lung disease [Not Recovered/Not Resolved]
  - Dermatomyositis [Unknown]
